FAERS Safety Report 7067280-8 (Version None)
Quarter: 2010Q4

REPORT INFORMATION
  Report Type: 
  Country: None (occurrence: None)
  Receive Date: 20101022
  Receipt Date: 20101022
  Transmission Date: 20110411
  Serious: No
  Sender: FDA-Public Use
  Company Number: None

PATIENT
  Age: 52 Year
  Sex: Female
  Weight: 74.3899 kg

DRUGS (1)
  1. PREMPRO [Suspect]
     Indication: MENOPAUSAL DISORDER
     Dosage: 0.625MG DAILY PO
     Route: 048
     Dates: start: 20100730, end: 20101020

REACTIONS (6)
  - CHEST PAIN [None]
  - DISCOMFORT [None]
  - GAIT DISTURBANCE [None]
  - PAIN [None]
  - PAIN IN EXTREMITY [None]
  - RASH [None]
